FAERS Safety Report 21275467 (Version 2)
Quarter: 2022Q4

REPORT INFORMATION
  Report Type: Report from Study
  Country: BR (occurrence: BR)
  Receive Date: 20220831
  Receipt Date: 20221215
  Transmission Date: 20230113
  Serious: Yes (Death)
  Sender: FDA-Public Use
  Company Number: BR-PFIZER INC-PV202200053673

PATIENT
  Age: 8 Year
  Sex: Female
  Weight: 24 kg

DRUGS (10)
  1. LORLATINIB [Suspect]
     Active Substance: LORLATINIB
     Dosage: UNK
     Dates: start: 202106
  2. IRINOTECAN HYDROCHLORIDE [Suspect]
     Active Substance: IRINOTECAN HYDROCHLORIDE
     Dosage: UNK
     Dates: start: 202108
  3. IRINOTECAN HYDROCHLORIDE [Suspect]
     Active Substance: IRINOTECAN HYDROCHLORIDE
     Dosage: UNK
     Dates: start: 202112
  4. TEMOZOLOMIDE [Suspect]
     Active Substance: TEMOZOLOMIDE
     Dosage: UNK
     Dates: start: 202108
  5. TEMOZOLOMIDE [Suspect]
     Active Substance: TEMOZOLOMIDE
     Dosage: UNK
     Dates: start: 202112
  6. DINUTUXIMAB [Suspect]
     Active Substance: DINUTUXIMAB
     Dosage: UNK
     Dates: start: 202108
  7. SARGRAMOSTIM [Suspect]
     Active Substance: SARGRAMOSTIM
     Dosage: UNK
     Dates: start: 202108
  8. SARGRAMOSTIM [Suspect]
     Active Substance: SARGRAMOSTIM
     Dosage: UNK
     Dates: start: 202112
  9. NAXITAMAB [Suspect]
     Active Substance: NAXITAMAB
     Dosage: UNK
     Dates: start: 202112
  10. IOBENGUANE I-123 [Suspect]
     Active Substance: IOBENGUANE I-123
     Dosage: UNK
     Dates: start: 202203

REACTIONS (1)
  - Neoplasm progression [Fatal]

NARRATIVE: CASE EVENT DATE: 20220411
